FAERS Safety Report 13653353 (Version 3)
Quarter: 2017Q3

REPORT INFORMATION
  Report Type: Report from Study
  Country: UY (occurrence: UY)
  Receive Date: 20170614
  Receipt Date: 20170807
  Transmission Date: 20171127
  Serious: Yes (Other)
  Sender: FDA-Public Use
  Company Number: UY-ACTELION-A-US2017-155353

PATIENT
  Age: 34 Year
  Sex: Female

DRUGS (10)
  1. LORATADINE. [Concomitant]
     Active Substance: LORATADINE
     Dosage: UNK
  2. KETOPROFEN. [Concomitant]
     Active Substance: KETOPROFEN
     Dosage: UNK
  3. SILDENAFIL. [Concomitant]
     Active Substance: SILDENAFIL
     Dosage: UNK
  4. VENTAVIS [Suspect]
     Active Substance: ILOPROST
     Indication: PULMONARY HYPERTENSION
     Dosage: 1 DF, 8ID
     Route: 055
     Dates: start: 20160712
  5. TRACLEER [Concomitant]
     Active Substance: BOSENTAN
     Indication: PULMONARY ARTERIAL HYPERTENSION
     Dosage: UNK
  6. DIGOXIN. [Concomitant]
     Active Substance: DIGOXIN
     Dosage: UNK
  7. FUROSEMIDE. [Concomitant]
     Active Substance: FUROSEMIDE
     Dosage: UNK
  8. HOMATROPINE [Concomitant]
     Active Substance: HOMATROPINE\HOMATROPINE HYDROBROMIDE
     Dosage: UNK
  9. MYCOPHENOLATE MOFETIL. [Concomitant]
     Active Substance: MYCOPHENOLATE MOFETIL
     Dosage: UNK
  10. VENTAVIS [Suspect]
     Active Substance: ILOPROST
     Dosage: UNK
     Route: 055

REACTIONS (7)
  - Tachycardia [Recovering/Resolving]
  - Nausea [Recovering/Resolving]
  - Pyrexia [Not Recovered/Not Resolved]
  - Oropharyngeal pain [Not Recovered/Not Resolved]
  - Polyarthritis [Recovered/Resolved]
  - Arthralgia [Recovering/Resolving]
  - Joint swelling [Recovering/Resolving]

NARRATIVE: CASE EVENT DATE: 20170604
